FAERS Safety Report 17962929 (Version 3)
Quarter: 2021Q2

REPORT INFORMATION
  Report Type: Report from Study
  Country: KR (occurrence: KR)
  Receive Date: 20200630
  Receipt Date: 20210609
  Transmission Date: 20210717
  Serious: Yes (Death, Other)
  Sender: FDA-Public Use
  Company Number: KR-BRISTOL-MYERS SQUIBB COMPANY-BMS-2020-051133

PATIENT
  Age: 58 Year
  Sex: Male
  Weight: 62 kg

DRUGS (4)
  1. PROPACETAMOL HCL [Concomitant]
     Indication: ASCITES
     Dosage: 1 GRAM, QD
     Route: 042
     Dates: start: 20200508, end: 20200511
  2. CIPROFLOXACIN. [Concomitant]
     Active Substance: CIPROFLOXACIN
     Indication: PERITONITIS
     Dosage: 400 MILLIGRAM, QD
     Route: 042
     Dates: start: 20200508, end: 20200516
  3. NIVOLUMAB [Suspect]
     Active Substance: NIVOLUMAB
     Indication: NON-SMALL CELL LUNG CANCER METASTATIC
     Dosage: 3 MICROGRAM/KILOGRAM, Q2WK
     Route: 041
     Dates: start: 20200508
  4. PIPERACILLIN SODIUM;TAZOBACTAM [Concomitant]
     Active Substance: PIPERACILLIN SODIUM\TAZOBACTAM SODIUM
     Indication: ASCITES
     Dosage: 4.5 GRAM, QD
     Route: 042
     Dates: start: 20200515, end: 20200516

REACTIONS (4)
  - Peritonitis [Fatal]
  - Ascites [Fatal]
  - Hypotension [Fatal]
  - Blood creatinine increased [Fatal]

NARRATIVE: CASE EVENT DATE: 20200508
